FAERS Safety Report 9280414 (Version 1)
Quarter: 2013Q1

REPORT INFORMATION
  Report Type: Spontaneous
  Country: US (occurrence: None)
  Receive Date: 20130115
  Receipt Date: 20130115
  Transmission Date: 20140127
  Serious: Yes (Hospitalization)
  Sender: FDA-Public Use
  Company Number: 33703

PATIENT
  Age: 67 Year
  Sex: Female
  Weight: 49.44 kg

DRUGS (17)
  1. GLASSIA [Suspect]
     Indication: ALPHA-1 ANTI-TRYPSIN DEFICIENCY
     Route: 042
     Dates: start: 201108
  2. PERFORO MIST [Concomitant]
  3. DUDESONIIDE [Concomitant]
  4. IPRATROPIUM [Concomitant]
  5. ALBUTEROL [Concomitant]
  6. NEXIUM [Concomitant]
  7. HYDROCHLOROTHIAZIDE [Concomitant]
  8. O2 [Concomitant]
  9. TRAMADOL [Concomitant]
  10. PRAVASTATIN [Concomitant]
  11. ASPIRIN [Concomitant]
  12. VITAMIN D [Concomitant]
  13. CARVEDILOL [Concomitant]
  14. MONTELUKAST [Concomitant]
  15. DIGOXIN [Concomitant]
  16. MIRTAZAPINE [Concomitant]
  17. SINGULAIR [Concomitant]

REACTIONS (5)
  - Cardiac failure congestive [None]
  - Chronic obstructive pulmonary disease [None]
  - Lung infection [None]
  - Fluid retention [None]
  - Urethral dilation procedure [None]
